FAERS Safety Report 11588606 (Version 1)
Quarter: 2015Q4

REPORT INFORMATION
  Report Type: Spontaneous
  Country: AU (occurrence: None)
  Receive Date: 20151001
  Receipt Date: 20151001
  Transmission Date: 20160304
  Serious: Yes (Disabling)
  Sender: FDA-Public Use
  Company Number: None

PATIENT
  Age: 58 Year
  Sex: Female
  Weight: 68 kg

DRUGS (14)
  1. VITAMIN D [Concomitant]
     Active Substance: CHOLECALCIFEROL
  2. PANADOL [Concomitant]
     Active Substance: ACETAMINOPHEN
  3. PROLIA [Suspect]
     Active Substance: DENOSUMAB
     Indication: OSTEOPOROSIS
  4. ROSEHIP OIL [Concomitant]
  5. ANTI HISTAMINES( TELFAST) [Concomitant]
  6. TEA TREE OIL [Concomitant]
     Active Substance: TEA TREE OIL
  7. CALTRATE WITH VITAMIN D [Concomitant]
     Active Substance: CALCIUM CARBONATE\CHOLECALCIFEROL
  8. CEPHLEXIN ANTIBIOTIC [Concomitant]
  9. VITAMIN E CREAM [Concomitant]
  10. MOO GOO [Concomitant]
  11. NATROPATHIC EXCEMA CREAM [Concomitant]
  12. VITAMIN C [Concomitant]
     Active Substance: ASCORBIC ACID
  13. AVEENO [Concomitant]
     Active Substance: DIMETHICONE\HOMOSALATE\OCTINOXATE\OCTISALATE\TITANIUM DIOXIDE
  14. SALTY WATER BATH [Concomitant]

REACTIONS (5)
  - Skin irritation [None]
  - Burning sensation [None]
  - Skin disorder [None]
  - Pain of skin [None]
  - Pruritus [None]

NARRATIVE: CASE EVENT DATE: 20150608
